FAERS Safety Report 6480390-9 (Version None)
Quarter: 2009Q4

REPORT INFORMATION
  Report Type: 
  Country: None (occurrence: None)
  Receive Date: 20091208
  Receipt Date: 20091103
  Transmission Date: 20100525
  Serious: Yes (Hospitalization)
  Sender: FDA-Public Use
  Company Number: GXKR2009GB10444

PATIENT
  Age: 52 Year
  Sex: Male

DRUGS (16)
  1. RISPERIDONE (NGX) [Suspect]
     Indication: PSYCHOTIC DISORDER
     Dosage: 4 MG/DAY
     Route: 048
     Dates: start: 20060914
  2. CITALOPRAM HYDROBROMIDE [Suspect]
     Indication: DEPRESSION
     Dosage: 40 MG/DAY
     Route: 048
     Dates: start: 20011207, end: 20090803
  3. VALPROATE SODIUM [Concomitant]
     Indication: MOOD SWINGS
     Dosage: 2200 MG, UNK
     Route: 048
     Dates: start: 20050628
  4. ACETYLSALICYLIC ACID [Concomitant]
     Dosage: 75 MG, QD
     Route: 048
     Dates: start: 20080812
  5. ATENOLOL [Concomitant]
     Dosage: 50 MG, QD
     Route: 048
     Dates: start: 20071012, end: 20090701
  6. BISOPROLOL [Concomitant]
     Dosage: 2.5 MG, QD
     Route: 048
     Dates: start: 20090701
  7. CLOZAPINE [Concomitant]
     Indication: PSYCHOTIC DISORDER
     Dosage: 275 MG, QD
     Route: 048
     Dates: start: 20001214
  8. DIAZEPAM [Concomitant]
     Dosage: UNK
     Route: 048
     Dates: start: 20050621
  9. DOXAZOSIN [Concomitant]
     Dosage: 4 MG, QD
     Route: 048
     Dates: start: 20080229
  10. IBUPROFEN [Concomitant]
     Dosage: 400 MG, PRN
     Route: 048
     Dates: start: 20080910
  11. LACTULOSE [Concomitant]
     Indication: CONSTIPATION
     Dosage: 10 MG, BID
     Route: 048
     Dates: start: 20080220
  12. OMEPRAZOLE [Concomitant]
     Dosage: 20 MG, QD
     Route: 048
     Dates: start: 20010215
  13. PIRENZEPINE [Concomitant]
     Indication: SALIVARY HYPERSECRETION
     Dosage: 75 MG, BID
     Route: 048
     Dates: start: 20090319
  14. RAMIPRIL [Concomitant]
     Dosage: 5 MG, QD
     Route: 048
     Dates: start: 20081218
  15. SENNA [Concomitant]
     Dosage: 2 DF, PRN
     Route: 048
     Dates: start: 20080802
  16. SIMVASTATIN [Concomitant]
     Dosage: 40 MG, QD
     Route: 048
     Dates: start: 20080812

REACTIONS (2)
  - HYPONATRAEMIA [None]
  - SYNCOPE [None]
